FAERS Safety Report 16687103 (Version 1)
Quarter: 2019Q3

REPORT INFORMATION
  Report Type: Spontaneous
  Country: US (occurrence: US)
  Receive Date: 20190808
  Receipt Date: 20190808
  Transmission Date: 20191004
  Serious: No
  Sender: FDA-Public Use
  Company Number: None

PATIENT
  Age: 47 Year
  Sex: Female
  Weight: 76.5 kg

DRUGS (1)
  1. REPATHA [Suspect]
     Active Substance: EVOLOCUMAB
     Indication: TYPE IIA HYPERLIPIDAEMIA
     Dosage: ?          QUANTITY:1 INJECTION(S);OTHER FREQUENCY:1/TWO WEEKS;?
     Route: 030
     Dates: start: 20180101

REACTIONS (5)
  - Fatigue [None]
  - Influenza [None]
  - Aphonia [None]
  - Weight increased [None]
  - Oropharyngeal pain [None]
